FAERS Safety Report 7813662-3 (Version None)
Quarter: 2011Q4

REPORT INFORMATION
  Report Type: 
  Country: None (occurrence: None)
  Receive Date: 20111014
  Receipt Date: 20110930
  Transmission Date: 20120403
  Serious: Yes (Other)
  Sender: FDA-Public Use
  Company Number: US-BAYER-2011-027475

PATIENT
  Age: 22 Year
  Sex: Female
  Weight: 87.982 kg

DRUGS (8)
  1. ONDANSETRON HCL [Concomitant]
     Dosage: 8 MG, UNK
     Route: 048
     Dates: start: 20091027
  2. IBUPROFEN [Concomitant]
     Dosage: 600 MG, UNK
     Route: 048
     Dates: start: 20090818
  3. YAZ [Suspect]
     Indication: CONTRACEPTION
     Dosage: UNK
     Dates: start: 20081031, end: 20090201
  4. MACROBID [Concomitant]
     Dosage: 100 MG, BID
     Route: 048
     Dates: start: 20090820, end: 20090830
  5. MICONAZOLE [Concomitant]
     Route: 061
  6. HYDROCODONE BITARTRATE AND ACETAMINOPHEN [Concomitant]
     Dosage: UNK
     Route: 048
     Dates: start: 20090818, end: 20090827
  7. FLUCONAZOLE [Concomitant]
     Dosage: 200 MG, UNK
     Route: 048
     Dates: start: 20090820, end: 20090825
  8. POLYETHYLENE GLYCOL [Concomitant]
     Dosage: UNK
     Route: 048
     Dates: start: 20091028

REACTIONS (6)
  - PAIN [None]
  - ABDOMINAL PAIN [None]
  - CHOLECYSTITIS CHRONIC [None]
  - NAUSEA [None]
  - BILIARY COLIC [None]
  - ABDOMINAL PAIN UPPER [None]
